FAERS Safety Report 9760867 (Version 1)
Quarter: 2013Q4

REPORT INFORMATION
  Report Type: Spontaneous
  Country: US (occurrence: US)
  Receive Date: 20131216
  Receipt Date: 20131216
  Transmission Date: 20140711
  Serious: No
  Sender: FDA-Public Use
  Company Number: US-BIOGENIDEC-2013BI109182

PATIENT
  Age: 60 Year
  Sex: Female

DRUGS (3)
  1. TECFIDERA [Suspect]
     Indication: PRODUCT USED FOR UNKNOWN INDICATION
  2. GABAPENTIN [Concomitant]
  3. ZANAFLEX [Concomitant]

REACTIONS (4)
  - Loss of control of legs [Unknown]
  - Malaise [Unknown]
  - Nausea [Unknown]
  - Gastrointestinal disorder [Unknown]
